FAERS Safety Report 26152387 (Version 1)
Quarter: 2025Q4

REPORT INFORMATION
  Report Type: Spontaneous
  Country: US (occurrence: US)
  Receive Date: 20251214
  Receipt Date: 20251214
  Transmission Date: 20260117
  Serious: Yes (Other)
  Sender: Kenvue
  Company Number: US-KENVUE-20251201894

PATIENT
  Age: 64 Year
  Sex: Male

DRUGS (2)
  1. FAMOTIDINE [Suspect]
     Active Substance: FAMOTIDINE
     Indication: Cough
     Dosage: 20 MILLIGRAM, ONCE A DAY
     Route: 065
  2. FAMOTIDINE [Suspect]
     Active Substance: FAMOTIDINE
     Dosage: 20 MILLIGRAM, TWICE A DAY
     Route: 065

REACTIONS (3)
  - Hallucination, visual [Recovered/Resolved]
  - Off label use [Unknown]
  - Toxicity to various agents [Unknown]
